FAERS Safety Report 26013423 (Version 1)
Quarter: 2025Q4

REPORT INFORMATION
  Report Type: Spontaneous
  Country: EU (occurrence: EU)
  Receive Date: 20251107
  Receipt Date: 20251107
  Transmission Date: 20260117
  Serious: Yes (Other)
  Sender: Kenvue
  Company Number: EU-ALKEM LABORATORIES LIMITED-DE-ALKEM-2025-11372

PATIENT

DRUGS (1)
  1. IBUPROFEN [Suspect]
     Active Substance: IBUPROFEN
     Indication: Migraine
     Dosage: UNK
     Route: 065

REACTIONS (2)
  - NSAID exacerbated respiratory disease [Recovered/Resolved]
  - Drug intolerance [Unknown]
